FAERS Safety Report 15015029 (Version 2)
Quarter: 2018Q2

REPORT INFORMATION
  Report Type: Report from Study
  Country: PL (occurrence: PL)
  Receive Date: 20180615
  Receipt Date: 20180628
  Transmission Date: 20180711
  Serious: Yes (Hospitalization)
  Sender: FDA-Public Use
  Company Number: PL-ASTRAZENECA-2018SE76517

PATIENT
  Age: 25524 Day
  Sex: Female

DRUGS (14)
  1. DIUVER [Concomitant]
     Active Substance: TORSEMIDE
     Indication: HYPERTENSION
     Route: 048
     Dates: start: 20150408, end: 20180509
  2. NEBIVOLOL. [Concomitant]
     Active Substance: NEBIVOLOL
     Indication: HYPERTENSION
     Route: 048
     Dates: start: 20150408
  3. INSULIN INJECTION, ISOPHANE [Concomitant]
     Active Substance: INSULIN HUMAN
     Indication: DIABETES MELLITUS
     Route: 058
     Dates: start: 20170904, end: 20180509
  4. ANAPRAN [Concomitant]
     Indication: PAIN MANAGEMENT
     Route: 048
  5. VENESCIN [Concomitant]
     Active Substance: BIOFLAVONOIDS
     Indication: PERIPHERAL VENOUS DISEASE
     Route: 048
  6. STRUCTUM [Concomitant]
     Active Substance: SODIUM CHONDROITIN SULFATE
     Indication: OSTEOARTHRITIS
     Route: 048
     Dates: start: 20170130
  7. CAPTOPRIL. [Concomitant]
     Active Substance: CAPTOPRIL
     Indication: HYPERTENSION
     Route: 060
  8. POLOCARD [Concomitant]
     Active Substance: ASPIRIN
     Indication: CARDIOVASCULAR DISORDER
     Route: 048
  9. DOXANORM [Concomitant]
     Indication: HYPERTENSION
     Route: 048
     Dates: start: 20160922, end: 20180509
  10. PADOLTEN [Concomitant]
     Indication: OSTEOARTHRITIS
     Route: 048
     Dates: start: 20170130
  11. POLHUMIN R [Concomitant]
     Active Substance: INSULIN HUMAN
     Indication: DIABETES MELLITUS
     Route: 058
     Dates: start: 20170904, end: 20180509
  12. LARUS [Concomitant]
     Route: 048
  13. DAPAGLIFLOZIN. [Suspect]
     Active Substance: DAPAGLIFLOZIN
     Indication: TYPE 2 DIABETES MELLITUS
     Route: 048
     Dates: start: 20140327, end: 20150923
  14. VALSARTAN. [Concomitant]
     Active Substance: VALSARTAN
     Indication: HYPERTENSION
     Route: 048
     Dates: start: 20150408

REACTIONS (1)
  - Diabetic metabolic decompensation [Recovered/Resolved]

NARRATIVE: CASE EVENT DATE: 20180510
